FAERS Safety Report 8775453 (Version 3)
Quarter: 2012Q4

REPORT INFORMATION
  Report Type: Report from Study
  Country: US (occurrence: US)
  Receive Date: 20120909
  Receipt Date: 20121005
  Transmission Date: 20130627
  Serious: Yes (Other)
  Sender: FDA-Public Use
  Company Number: US-ABBOTT-12P-163-0975841-00

PATIENT
  Age: 24 None
  Sex: Female
  Weight: 83.99 kg

DRUGS (3)
  1. LUPRON DEPOT [Suspect]
     Indication: ENDOMETRIOSIS
     Dates: start: 2002
  2. LUPRON DEPOT [Suspect]
     Route: 030
     Dates: start: 20120829
  3. NORETHINDRONE ACETATE [Concomitant]
     Indication: PRODUCT USED FOR UNKNOWN INDICATION
     Dates: start: 20120830

REACTIONS (3)
  - Intestinal operation [Unknown]
  - Road traffic accident [Unknown]
  - Hot flush [Recovered/Resolved]
